FAERS Safety Report 15773233 (Version 1)
Quarter: 2018Q4

REPORT INFORMATION
  Report Type: Spontaneous
  Country: US (occurrence: US)
  Receive Date: 20181228
  Receipt Date: 20181228
  Transmission Date: 20190205
  Serious: Yes (Other)
  Sender: FDA-Public Use
  Company Number: US-BAUSCH-BL-2018-035898

PATIENT
  Age: 37 Year
  Sex: Female

DRUGS (3)
  1. 5-FLUOROURACIL [Suspect]
     Active Substance: FLUOROURACIL
     Indication: KERATOSIS FOLLICULAR
     Route: 065
  2. SILVADENE [Suspect]
     Active Substance: SILVER SULFADIAZINE
     Indication: KERATOSIS FOLLICULAR
     Route: 065
  3. SALICYLIC ACID. [Suspect]
     Active Substance: SALICYLIC ACID
     Indication: KERATOSIS FOLLICULAR
     Route: 065

REACTIONS (1)
  - Drug resistance [Unknown]
